FAERS Safety Report 15983185 (Version 1)
Quarter: 2019Q1

REPORT INFORMATION
  Report Type: Spontaneous
  Country: FR (occurrence: FR)
  Receive Date: 20190220
  Receipt Date: 20190220
  Transmission Date: 20190418
  Serious: Yes (Congenital Anomaly, Other)
  Sender: FDA-Public Use
  Company Number: FR-LUPIN PHARMACEUTICALS INC.-2019-00957

PATIENT
  Sex: Male
  Weight: 2.81 kg

DRUGS (1)
  1. MISOPROSTOL TABLET [Suspect]
     Active Substance: MISOPROSTOL
     Indication: ABORTION INDUCED
     Dosage: UNK
     Route: 064

REACTIONS (3)
  - Congenital hydrocephalus [Recovered/Resolved]
  - Foetal exposure during pregnancy [Unknown]
  - Congenital aqueductal stenosis [Recovered/Resolved]
